FAERS Safety Report 25469906 (Version 2)
Quarter: 2025Q4

REPORT INFORMATION
  Report Type: Report from Study
  Country: US (occurrence: US)
  Receive Date: 20250623
  Receipt Date: 20251210
  Transmission Date: 20260118
  Serious: No
  Sender: ASTELLAS
  Company Number: US-ASTELLAS-2025-AER-023355

PATIENT
  Age: 62 Year
  Sex: Female

DRUGS (4)
  1. VEOZAH [Suspect]
     Active Substance: FEZOLINETANT
     Indication: Hot flush
     Route: 048
     Dates: start: 20230619
  2. VEOZAH [Suspect]
     Active Substance: FEZOLINETANT
     Indication: Menopausal symptoms
     Dosage: ONCE A WEEK THREE TIMES
     Route: 048
  3. VEOZAH [Suspect]
     Active Substance: FEZOLINETANT
     Route: 048
     Dates: start: 20250926
  4. VEOZAH [Suspect]
     Active Substance: FEZOLINETANT
     Dosage: WEANED
     Route: 048
     Dates: start: 20251026

REACTIONS (2)
  - Liver function test abnormal [Unknown]
  - Inappropriate schedule of product administration [Unknown]
